FAERS Safety Report 9849006 (Version 2)
Quarter: 2014Q1

REPORT INFORMATION
  Report Type: Spontaneous
  Country: GB (occurrence: GB)
  Receive Date: 20140128
  Receipt Date: 20140128
  Transmission Date: 20141002
  Serious: Yes (Hospitalization)
  Sender: FDA-Public Use
  Company Number: GB-TEVA-450587ISR

PATIENT
  Age: 50 Year
  Sex: Female
  Weight: 92 kg

DRUGS (20)
  1. SPIRONOLACTONE [Suspect]
     Indication: CARDIAC FAILURE
     Dosage: 25 MILLIGRAM DAILY; 25MG 1X/DAY
  2. FUROSEMIDE [Suspect]
     Indication: FLUID RETENTION
     Dosage: 160 MILLIGRAM DAILY; 80MG 2X/DAY
     Route: 048
     Dates: end: 20130730
  3. INSPRA [Suspect]
     Indication: MYOCARDIAL INFARCTION
     Dosage: 25 MILLIGRAM DAILY; 25MG 1X/DAY
     Route: 048
  4. BISOPROLOL [Concomitant]
     Indication: MYOCARDIAL ISCHAEMIA
     Dosage: 7.5 MILLIGRAM DAILY; 7.5MG 1X/DAY
     Route: 048
  5. BISOPROLOL [Concomitant]
     Indication: CARDIAC FAILURE
  6. LOSARTAN [Concomitant]
     Indication: MYOCARDIAL ISCHAEMIA
     Dosage: 25 MILLIGRAM DAILY; 25MG 1X/DAY
     Route: 048
  7. LOSARTAN [Concomitant]
     Indication: CARDIAC FAILURE
  8. IVABRADINE [Concomitant]
     Indication: CARDIAC FAILURE
     Dosage: 10 MILLIGRAM DAILY; 5MG 2X/DAY
     Route: 048
  9. IVABRADINE [Concomitant]
     Indication: HEART RATE INCREASED
  10. IMDUR [Concomitant]
     Indication: ANGINA PECTORIS
     Dosage: 60 MILLIGRAM DAILY; 60MG 1X/DAY
     Route: 048
  11. ASPIRIN [Concomitant]
     Indication: MYOCARDIAL ISCHAEMIA
     Dosage: 75 MILLIGRAM DAILY; 75MG 1X/DAY
     Route: 048
  12. ASPIRIN [Concomitant]
     Indication: MYOCARDIAL INFARCTION
  13. ATORVASTATIN [Concomitant]
     Indication: MYOCARDIAL ISCHAEMIA
     Dosage: 40 MILLIGRAM DAILY; 40MG 1X/DAY AT NIGHT
     Route: 048
  14. ATORVASTATIN [Concomitant]
     Indication: MYOCARDIAL INFARCTION
  15. METFORMIN [Concomitant]
     Indication: TYPE 2 DIABETES MELLITUS
     Dosage: 2 MILLIGRAM DAILY; 1 MG 2X/DAY
     Route: 048
  16. SITAGLIPTIN [Concomitant]
     Indication: TYPE 2 DIABETES MELLITUS
     Dosage: 100 MILLIGRAM DAILY; 100 MG 1X/DAY
     Route: 048
  17. GLICLAZIDE [Concomitant]
     Indication: TYPE 2 DIABETES MELLITUS
     Dosage: 320 MILLIGRAM DAILY; 160MG 2X/DAY
     Route: 048
  18. LANSOPRAZOLE [Concomitant]
     Dosage: 30 MILLIGRAM DAILY; 30MG 1X/DAY
  19. EXENATIDE [Concomitant]
     Indication: TYPE 2 DIABETES MELLITUS
     Dosage: 10 UNITS 2X/DAY
     Route: 058
  20. NOVOMIX [Concomitant]
     Indication: TYPE 2 DIABETES MELLITUS
     Route: 058

REACTIONS (8)
  - Renal failure acute [Recovering/Resolving]
  - Malaise [Not Recovered/Not Resolved]
  - Weight increased [Not Recovered/Not Resolved]
  - Urine output decreased [Not Recovered/Not Resolved]
  - Musculoskeletal pain [Not Recovered/Not Resolved]
  - Dyspnoea [Not Recovered/Not Resolved]
  - Vomiting [Not Recovered/Not Resolved]
  - Acute pulmonary oedema [Not Recovered/Not Resolved]
